FAERS Safety Report 5877272-X (Version None)
Quarter: 2008Q3

REPORT INFORMATION
  Report Type: 
  Country: None (occurrence: None)
  Receive Date: 20080908
  Receipt Date: 20080822
  Transmission Date: 20090109
  Serious: Yes (Hospitalization)
  Sender: FDA-Public Use
  Company Number: 004165

PATIENT
  Age: 48 Year
  Sex: Female

DRUGS (9)
  1. BUSUFLEX (BUSULFAN) INJECTION [Suspect]
     Indication: STEM CELL TRANSPLANT
     Dosage: 28.4 ML, UNK, INTRAVENOUS
     Route: 042
     Dates: start: 20070728, end: 20070729
  2. FLUDARABINE PHOSPHATE [Concomitant]
  3. ANTILYMPHOCYTE IMMUNOGLOBULIN (RABBIT) (ANTILYMPHOCYTE IMMUNOGLOBULIN [Concomitant]
  4. LENOGRASTIM (LENOGRASTIM) [Concomitant]
  5. METHOTREXATE [Concomitant]
  6. TACROLIMUS [Concomitant]
  7. GANCICLOVIR [Concomitant]
  8. GANCICLOVIR [Concomitant]
  9. FOSCAVIR [Concomitant]

REACTIONS (10)
  - ANOREXIA [None]
  - BONE MARROW TRANSPLANT REJECTION [None]
  - CYTOMEGALOVIRUS VIRAEMIA [None]
  - DIARRHOEA [None]
  - HEADACHE [None]
  - LIVER DISORDER [None]
  - NAUSEA [None]
  - RASH [None]
  - STOMATITIS [None]
  - VOMITING [None]
